FAERS Safety Report 10987908 (Version 2)
Quarter: 2015Q2

REPORT INFORMATION
  Report Type: Spontaneous
  Country: US (occurrence: US)
  Receive Date: 20150404
  Receipt Date: 20150525
  Transmission Date: 20150821
  Serious: No
  Sender: FDA-Public Use
  Company Number: US-JNJFOC-20120812220

PATIENT
  Age: 77 Year
  Sex: Male
  Weight: 56.7 kg

DRUGS (12)
  1. MULTIVITAMINS [Concomitant]
     Active Substance: VITAMINS
     Indication: NUTRITIONAL SUPPLEMENTATION
     Route: 065
     Dates: start: 201003
  2. TYLENOLOL [Concomitant]
     Indication: PREMEDICATION
     Route: 048
  3. ENTOCORT [Concomitant]
     Active Substance: BUDESONIDE
     Indication: GASTROINTESTINAL DISORDER
     Route: 065
  4. OMEGA 3 [Concomitant]
     Active Substance: OMEGA-3 FATTY ACIDS
     Indication: NUTRITIONAL SUPPLEMENTATION
     Route: 065
     Dates: start: 201003
  5. ENALAPRIL [Concomitant]
     Active Substance: ENALAPRIL
     Indication: CARDIOVASCULAR EVENT PROPHYLAXIS
     Route: 065
     Dates: start: 201003
  6. REMICADE [Suspect]
     Active Substance: INFLIXIMAB
     Indication: CROHN^S DISEASE
     Route: 042
  7. ALOE VERA [Concomitant]
     Active Substance: ALOE VERA LEAF
     Indication: NUTRITIONAL SUPPLEMENTATION
     Route: 065
     Dates: start: 201003
  8. BENADRYL [Concomitant]
     Active Substance: DIPHENHYDRAMINE HYDROCHLORIDE
     Route: 065
  9. REMICADE [Suspect]
     Active Substance: INFLIXIMAB
     Indication: CROHN^S DISEASE
     Route: 042
     Dates: start: 20110308, end: 20110405
  10. SOLU-MEDROL [Concomitant]
     Active Substance: METHYLPREDNISOLONE SODIUM SUCCINATE
     Indication: PREMEDICATION
     Route: 042
  11. BENADRYL [Concomitant]
     Active Substance: DIPHENHYDRAMINE HYDROCHLORIDE
     Indication: PREMEDICATION
     Route: 042
  12. FLAXSEED [Concomitant]
     Active Substance: FLAX SEED
     Indication: NUTRITIONAL SUPPLEMENTATION
     Route: 065

REACTIONS (11)
  - Pruritus [Recovered/Resolved]
  - Sinus congestion [Unknown]
  - Tremor [Unknown]
  - Infusion related reaction [Unknown]
  - Chest pain [Recovered/Resolved]
  - Pyrexia [Unknown]
  - Dizziness [Unknown]
  - Vomiting [Recovered/Resolved]
  - Flushing [Recovered/Resolved]
  - Arthralgia [Unknown]
  - Hyperhidrosis [Unknown]

NARRATIVE: CASE EVENT DATE: 20110405
